FAERS Safety Report 7264812-1 (Version None)
Quarter: 2011Q1

REPORT INFORMATION
  Report Type: 
  Country: None (occurrence: None)
  Receive Date: 20110131
  Receipt Date: 20110118
  Transmission Date: 20110831
  Serious: Yes (Other)
  Sender: FDA-Public Use
  Company Number: FI-JNJFOC-20110104957

PATIENT
  Age: 3 Year
  Sex: Female

DRUGS (1)
  1. REMICADE [Suspect]
     Indication: IRITIS
     Route: 042

REACTIONS (2)
  - STEVENS-JOHNSON SYNDROME [None]
  - VIRAL INFECTION [None]
